FAERS Safety Report 16788716 (Version 2)
Quarter: 2019Q4

REPORT INFORMATION
  Report Type: Report from Study
  Country: None (occurrence: US)
  Receive Date: 20190910
  Receipt Date: 20191219
  Transmission Date: 20200122
  Serious: Yes (Other)
  Sender: FDA-Public Use
  Company Number: US-ABBVIE-19K-163-2912784-00

PATIENT
  Age: 36 Year
  Sex: Male
  Weight: 98.97 kg

DRUGS (1)
  1. HUMIRA [Suspect]
     Active Substance: ADALIMUMAB
     Indication: CROHN^S DISEASE
     Route: 058

REACTIONS (4)
  - Large intestinal haemorrhage [Unknown]
  - Gastric infection [Unknown]
  - Crohn^s disease [Unknown]
  - Large intestinal ulcer [Unknown]

NARRATIVE: CASE EVENT DATE: 201907
